FAERS Safety Report 12630293 (Version 1)
Quarter: 2016Q3

REPORT INFORMATION
  Report Type: Spontaneous
  Country: US (occurrence: US)
  Receive Date: 20160808
  Receipt Date: 20160808
  Transmission Date: 20161109
  Serious: No
  Sender: FDA-Public Use
  Company Number: US-FRI-1000085730

PATIENT
  Sex: Female

DRUGS (2)
  1. FETZIMA [Suspect]
     Active Substance: LEVOMILNACIPRAN HYDROCHLORIDE
  2. SAPHRIS [Suspect]
     Active Substance: ASENAPINE MALEATE

REACTIONS (1)
  - Dizziness [Not Recovered/Not Resolved]
